FAERS Safety Report 9171896 (Version 1)
Quarter: 2013Q1

REPORT INFORMATION
  Report Type: Spontaneous
  Country: US (occurrence: US)
  Receive Date: 20130319
  Receipt Date: 20130319
  Transmission Date: 20140127
  Serious: Yes (Hospitalization, Other)
  Sender: FDA-Public Use
  Company Number: US-JNJFOC-20130305616

PATIENT
  Sex: Female

DRUGS (5)
  1. XARELTO [Suspect]
     Indication: THROMBOSIS PROPHYLAXIS
     Route: 048
     Dates: start: 2012
  2. LASIX [Concomitant]
     Indication: HYPERTENSION
     Route: 065
     Dates: start: 2012
  3. LASIX [Concomitant]
     Indication: OEDEMA PERIPHERAL
     Route: 065
     Dates: start: 2012
  4. SERTRALINE [Concomitant]
     Indication: PRODUCT USED FOR UNKNOWN INDICATION
     Route: 065
     Dates: start: 2012
  5. COLACE [Concomitant]
     Indication: ABNORMAL FAECES
     Route: 065
     Dates: start: 2012

REACTIONS (8)
  - Epistaxis [Unknown]
  - Facial bones fracture [Not Recovered/Not Resolved]
  - Contusion [Not Recovered/Not Resolved]
  - Spinal column injury [Not Recovered/Not Resolved]
  - Fall [Recovered/Resolved]
  - Head injury [Recovered/Resolved]
  - Swelling face [Not Recovered/Not Resolved]
  - Skin mass [Not Recovered/Not Resolved]
